FAERS Safety Report 24151819 (Version 2)
Quarter: 2024Q3

REPORT INFORMATION
  Report Type: Spontaneous
  Country: US (occurrence: US)
  Receive Date: 20240730
  Receipt Date: 20240806
  Transmission Date: 20241017
  Serious: No
  Sender: BAUSCH AND LOMB
  Company Number: US-BAUSCH-BL-2024-011360

PATIENT
  Age: 62 Year
  Sex: Female

DRUGS (2)
  1. JUBLIA [Suspect]
     Active Substance: EFINACONAZOLE
     Indication: Product used for unknown indication
     Dosage: APPLIED ON BOTH BIG TOES
     Route: 061
  2. JUBLIA [Suspect]
     Active Substance: EFINACONAZOLE
     Route: 061

REACTIONS (4)
  - Exposure via skin contact [Unknown]
  - Accidental overdose [Unknown]
  - Device delivery system issue [Unknown]
  - Product outer packaging issue [Unknown]

NARRATIVE: CASE EVENT DATE: 20240722
